FAERS Safety Report 10012381 (Version 1)
Quarter: 2014Q1

REPORT INFORMATION
  Report Type: Spontaneous
  Country: US (occurrence: US)
  Receive Date: 20140312
  Receipt Date: 20140312
  Transmission Date: 20141002
  Serious: No
  Sender: FDA-Public Use
  Company Number: US-PFIZER INC-2014068307

PATIENT
  Age: 85 Year
  Sex: Male

DRUGS (4)
  1. SUTENT [Suspect]
     Indication: GASTROINTESTINAL CARCINOMA
     Dosage: UNK
     Dates: start: 20140218
  2. LEVOTHYROXINE SODIUM [Concomitant]
     Dosage: UNK
  3. CITALOPRAM HYDROBROMIDE [Concomitant]
     Dosage: UNK
  4. ALCLOMETASONE DIPROPIONATE [Concomitant]
     Dosage: UNK

REACTIONS (1)
  - Fatigue [Unknown]
